FAERS Safety Report 9372164 (Version 1)
Quarter: 2013Q2

REPORT INFORMATION
  Report Type: Report from Study
  Country: US (occurrence: US)
  Receive Date: 20130627
  Receipt Date: 20130627
  Transmission Date: 20140414
  Serious: Yes (Hospitalization, Other)
  Sender: FDA-Public Use
  Company Number: US-MYLANLABS-2012S1016281

PATIENT
  Age: 22 Year
  Sex: Male

DRUGS (7)
  1. CLOZAPINE TABLETS [Suspect]
     Dates: start: 20120706, end: 20120813
  2. INVEGA /05724801/ [Concomitant]
     Route: 048
  3. ZYRTEC [Concomitant]
  4. DEPAKOTE ER [Concomitant]
  5. TRILEPTAL [Concomitant]
  6. IMIPRAMINE [Concomitant]
  7. CELEXA [Concomitant]

REACTIONS (2)
  - Granulocytopenia [Not Recovered/Not Resolved]
  - Leukopenia [Not Recovered/Not Resolved]
